FAERS Safety Report 9771861 (Version 1)
Quarter: 2013Q4

REPORT INFORMATION
  Report Type: Spontaneous
  Country: US (occurrence: US)
  Receive Date: 20131219
  Receipt Date: 20131219
  Transmission Date: 20140711
  Serious: Yes (Other)
  Sender: FDA-Public Use
  Company Number: US-AMGEN-USASP2013089082

PATIENT
  Age: 64 Year
  Sex: Female

DRUGS (2)
  1. ENBREL [Suspect]
     Indication: RHEUMATOID ARTHRITIS
     Dosage: 50 MG, QWK
     Route: 065
     Dates: start: 2013, end: 201311
  2. METHOTREXATE [Concomitant]
     Dosage: 20 MG, QWK
     Route: 048
     Dates: end: 201311

REACTIONS (7)
  - Hypogammaglobulinaemia [Not Recovered/Not Resolved]
  - Impaired healing [Not Recovered/Not Resolved]
  - Hepatic enzyme increased [Not Recovered/Not Resolved]
  - Weight increased [Not Recovered/Not Resolved]
  - Blister infected [Not Recovered/Not Resolved]
  - Rash pustular [Not Recovered/Not Resolved]
  - Anaemia [Not Recovered/Not Resolved]
